FAERS Safety Report 4453196-X (Version None)
Quarter: 2004Q3

REPORT INFORMATION
  Report Type: 
  Country: None (occurrence: None)
  Receive Date: 20040901
  Receipt Date: 20040730
  Transmission Date: 20050211
  Serious: Yes (Other)
  Sender: FDA-Public Use
  Company Number: US085612

PATIENT
  Age: 32 Year
  Sex: Female

DRUGS (3)
  1. ENBREL [Suspect]
     Indication: PSORIATIC ARTHROPATHY
     Dosage: 2 IN 1 WEEKS, SC
     Route: 058
     Dates: start: 20040101
  2. METHOTREXATE [Concomitant]
  3. CYCLOSPORINE [Concomitant]

REACTIONS (2)
  - DEMYELINATION [None]
  - OPTIC NEURITIS [None]
